FAERS Safety Report 5276929-1 (Version None)
Quarter: 2007Q1

REPORT INFORMATION
  Report Type: 
  Country: None (occurrence: None)
  Receive Date: 20070321
  Receipt Date: 20070305
  Transmission Date: 20070707
  Serious: Yes (Hospitalization)
  Sender: FDA-Public Use
  Company Number: 4055

PATIENT
  Age: 14 Year
  Sex: Male
  Weight: 56.6996 kg

DRUGS (1)
  1. AMNESTEEM [Suspect]
     Indication: ACNE
     Dosage: 60 MG, QD, PO
     Route: 048
     Dates: start: 20070105, end: 20070214

REACTIONS (3)
  - CELLULITIS [None]
  - CYSTITIS [None]
  - GLOMERULONEPHRITIS [None]
